FAERS Safety Report 23041072 (Version 2)
Quarter: 2023Q4

REPORT INFORMATION
  Report Type: Report from Study
  Country: US (occurrence: US)
  Receive Date: 20231007
  Receipt Date: 20231009
  Transmission Date: 20240109
  Serious: No
  Sender: FDA-Public Use
  Company Number: US-002147023-NVSC2023US212196

PATIENT
  Sex: Male

DRUGS (1)
  1. TABRECTA [Suspect]
     Active Substance: CAPMATINIB
     Indication: Product used for unknown indication
     Dosage: 200 MG
     Route: 048

REACTIONS (4)
  - Glossitis [Unknown]
  - Stomatitis [Unknown]
  - Oral discomfort [Unknown]
  - Wrong technique in product usage process [Unknown]
